FAERS Safety Report 4753493-4 (Version None)
Quarter: 2005Q3

REPORT INFORMATION
  Report Type: 
  Country: None (occurrence: None)
  Receive Date: 20050826
  Receipt Date: 20050712
  Transmission Date: 20060218
  Serious: Yes (Hospitalization)
  Sender: FDA-Public Use
  Company Number: 200511777EU

PATIENT
  Age: 58 Year
  Sex: Female

DRUGS (1)
  1. NICORETTE [Suspect]
     Indication: DRUG USE FOR UNKNOWN INDICATION
     Dosage: 2MG SIX TIMES PER DAY
     Route: 002
     Dates: start: 20050514, end: 20050603

REACTIONS (2)
  - DUODENAL ULCER [None]
  - GASTRIC HAEMORRHAGE [None]
